FAERS Safety Report 15089264 (Version 2)
Quarter: 2018Q3

REPORT INFORMATION
  Report Type: Spontaneous
  Country: IT (occurrence: IT)
  Receive Date: 20180629
  Receipt Date: 20180726
  Transmission Date: 20181010
  Serious: Yes (Other)
  Sender: FDA-Public Use
  Company Number: IT-AUROBINDO-AUR-APL-2018-032931

PATIENT
  Age: 49 Year
  Sex: Male

DRUGS (2)
  1. PARACETAMOL [Suspect]
     Active Substance: ACETAMINOPHEN
     Indication: PYREXIA
     Dosage: UNK
     Route: 048
     Dates: start: 20180516, end: 20180516
  2. NEO BOROCILLINA                    /00064601/ [Suspect]
     Active Substance: DICHLOROBENZYL ALCOHOL
     Indication: OROPHARYNGEAL PAIN
     Dosage: UNK
     Route: 065
     Dates: start: 20180516, end: 20180516

REACTIONS (4)
  - Erythema [Recovering/Resolving]
  - Swollen tongue [Recovering/Resolving]
  - Rash [Recovering/Resolving]
  - Oedema mouth [Recovering/Resolving]

NARRATIVE: CASE EVENT DATE: 20180517
